FAERS Safety Report 12254699 (Version 2)
Quarter: 2016Q2

REPORT INFORMATION
  Report Type: Spontaneous
  Country: US (occurrence: US)
  Receive Date: 20160411
  Receipt Date: 20160615
  Transmission Date: 20160815
  Serious: Yes (Hospitalization)
  Sender: FDA-Public Use
  Company Number: US-ACTELION-A-US2016-133991

PATIENT
  Age: 72 Year
  Sex: Male

DRUGS (8)
  1. VALCHLOR [Suspect]
     Active Substance: MECHLORETHAMINE
     Indication: MYCOSIS FUNGOIDES
     Dosage: UNK
     Route: 061
     Dates: start: 20160229
  2. PRANDIN [Concomitant]
     Active Substance: REPAGLINIDE
  3. IRON [Concomitant]
     Active Substance: IRON
  4. CLONIDINE. [Concomitant]
     Active Substance: CLONIDINE
  5. NIFEDIPINE. [Concomitant]
     Active Substance: NIFEDIPINE
  6. LABETALOL [Concomitant]
     Active Substance: LABETALOL\LABETALOL HYDROCHLORIDE
  7. LANTUS [Concomitant]
     Active Substance: INSULIN GLARGINE
  8. PRADAXA [Concomitant]
     Active Substance: DABIGATRAN ETEXILATE MESYLATE

REACTIONS (5)
  - Anaemia [Unknown]
  - Pulmonary hypertension [Unknown]
  - Thrombosis [Unknown]
  - Cardiac disorder [Unknown]
  - Cardiac failure congestive [Unknown]
